FAERS Safety Report 22632749 (Version 1)
Quarter: 2023Q2

REPORT INFORMATION
  Report Type: Spontaneous
  Country: TH (occurrence: None)
  Receive Date: 20230623
  Receipt Date: 20230623
  Transmission Date: 20230721
  Serious: Yes (Death, Other)
  Sender: FDA-Public Use
  Company Number: TH-ROCHE-3372102

PATIENT
  Age: 68 Year
  Sex: Male

DRUGS (3)
  1. ATEZOLIZUMAB [Suspect]
     Active Substance: ATEZOLIZUMAB
     Indication: Hepatocellular carcinoma
     Dosage: JAN/2023: 5 CYCLE
     Route: 065
  2. BEVACIZUMAB [Suspect]
     Active Substance: BEVACIZUMAB
     Indication: Hepatocellular carcinoma
     Route: 065
  3. PIPERACILLIN SODIUM\TAZOBACTAM SODIUM [Concomitant]
     Active Substance: PIPERACILLIN SODIUM\TAZOBACTAM SODIUM

REACTIONS (18)
  - Pathogen resistance [Fatal]
  - COVID-19 pneumonia [Recovered/Resolved]
  - Ischaemic stroke [Recovered/Resolved]
  - Hepatic function abnormal [Unknown]
  - Hepatic encephalopathy [Unknown]
  - Ill-defined disorder [Unknown]
  - Tachypnoea [Unknown]
  - Somnolence [Unknown]
  - Wheezing [Unknown]
  - Dyspnoea exertional [Unknown]
  - Chest pain [Unknown]
  - Abdominal pain upper [Unknown]
  - Increased appetite [Unknown]
  - Fatigue [Not Recovered/Not Resolved]
  - Erythema [Recovered/Resolved]
  - Blood pressure abnormal [Unknown]
  - Staphylococcal sepsis [Fatal]
  - Skin exfoliation [Recovered/Resolved]

NARRATIVE: CASE EVENT DATE: 20230201
